FAERS Safety Report 15947935 (Version 2)
Quarter: 2019Q1

REPORT INFORMATION
  Report Type: Report from Study
  Country: US (occurrence: US)
  Receive Date: 20190211
  Receipt Date: 20190224
  Transmission Date: 20190417
  Serious: No
  Sender: FDA-Public Use
  Company Number: US-009507513-1901USA012241

PATIENT
  Sex: Female
  Weight: 63.04 kg

DRUGS (1)
  1. IMPLANON [Suspect]
     Active Substance: ETONOGESTREL
     Indication: CONTRACEPTION
     Dosage: 1 DOSAGE FORM, ONE ROD EVERY 3
     Route: 059
     Dates: start: 20180918, end: 20190123

REACTIONS (3)
  - Device expulsion [Recovered/Resolved]
  - Implant site erythema [Recovered/Resolved]
  - Implant site pain [Recovered/Resolved]
